FAERS Safety Report 10081931 (Version 1)
Quarter: 2014Q2

REPORT INFORMATION
  Report Type: Spontaneous
  Country: GB (occurrence: GB)
  Receive Date: 20140416
  Receipt Date: 20140416
  Transmission Date: 20141212
  Serious: Yes (Disabling)
  Sender: FDA-Public Use
  Company Number: GB-GLAXOSMITHKLINE-B0984801A

PATIENT
  Age: 51 Year
  Sex: Male

DRUGS (9)
  1. REQUIP [Suspect]
     Indication: PARKINSON^S DISEASE
     Route: 048
     Dates: start: 20130911
  2. REQUIP XL [Suspect]
     Indication: PARKINSON^S DISEASE
     Dosage: 8MG PER DAY
     Route: 048
     Dates: end: 20140328
  3. AZILECT [Concomitant]
  4. BUTRANS [Concomitant]
  5. ESOMEPRAZOLE [Concomitant]
  6. NAPROXEN [Concomitant]
  7. PARACETAMOL [Concomitant]
  8. TRAMADOL [Concomitant]
  9. VALSARTAN [Concomitant]

REACTIONS (5)
  - Dropped head syndrome [Recovering/Resolving]
  - Hypertonia [Recovering/Resolving]
  - Muscular weakness [Recovering/Resolving]
  - Visual impairment [Recovering/Resolving]
  - Dysphonia [Recovering/Resolving]
